FAERS Safety Report 8577343 (Version 3)
Quarter: 2012Q4

REPORT INFORMATION
  Report Type: Report from Study
  Country: JP (occurrence: JP)
  Receive Date: 20120524
  Receipt Date: 20121025
  Transmission Date: 20130627
  Serious: Yes (Hospitalization, Other)
  Sender: FDA-Public Use
  Company Number: PHHY2012JP043449

PATIENT
  Age: 82 None
  Sex: Female

DRUGS (3)
  1. CO-DIOVAN [Suspect]
     Indication: HYPERTENSION
     Dosage: 1 DF, QD
     Route: 048
     Dates: start: 20090528, end: 20100720
  2. LASIX [Concomitant]
     Dosage: 20 mg
     Route: 048
     Dates: start: 19980522
  3. ASPARA-L [Concomitant]
     Dosage: 300 mg
     Route: 048
     Dates: start: 20071206

REACTIONS (6)
  - Renal failure [Unknown]
  - Blood urea increased [Unknown]
  - Anxiety disorder [Unknown]
  - Dementia [Unknown]
  - Decreased appetite [Unknown]
  - Hypertension [Unknown]
